FAERS Safety Report 6946389-0 (Version None)
Quarter: 2010Q3

REPORT INFORMATION
  Report Type: 
  Country: None (occurrence: None)
  Receive Date: 20100827
  Receipt Date: 20090728
  Transmission Date: 20110219
  Serious: No
  Sender: FDA-Public Use
  Company Number: US-ABBOTT-09P-163-0588239-00

PATIENT
  Sex: Male
  Weight: 84.444 kg

DRUGS (4)
  1. NIASPAN [Suspect]
     Indication: BLOOD TRIGLYCERIDES INCREASED
     Route: 048
     Dates: start: 20090719
  2. NIASPAN [Suspect]
     Indication: HIGH DENSITY LIPOPROTEIN DECREASED
  3. ASPIRIN [Concomitant]
     Indication: PROPHYLAXIS
     Route: 048
  4. INDOCIN [Concomitant]
     Indication: GOUT
     Dosage: (1-2) 50 MG TAB AT TIME OF FLARE AS NEEDED

REACTIONS (2)
  - BLOOD GLUCOSE INCREASED [None]
  - GOUT [None]
